FAERS Safety Report 8408689 (Version 2)
Quarter: 2013Q2

REPORT INFORMATION
  Report Type: Spontaneous
  Country: US (occurrence: None)
  Receive Date: 20111227
  Receipt Date: 20130107
  Transmission Date: 20140414
  Serious: Yes (Other)
  Sender: FDA-Public Use
  Company Number: PHEH2011US07188

PATIENT
  Age: 52 Year
  Sex: Male

DRUGS (5)
  1. GILENYA [Suspect]
     Dosage: 0.5 MG, QD, ORAL
     Route: 048
     Dates: start: 20110729
  2. CITALOPRAM HYDROBROMIDE [Concomitant]
  3. BUPROPION HYDROCHLORIDE [Concomitant]
  4. BACLOFEN (BACLOFEN) [Concomitant]
  5. WELLBUTRIN (BUPROPION HYDROCHLORIDE) [Concomitant]

REACTIONS (7)
  - TINNITUS [None]
  - HEADACHE [None]
  - Insomnia [None]
  - Fatigue [None]
  - Decreased interest [None]
  - Incontinence [None]
  - Migraine [None]
